FAERS Safety Report 9252896 (Version 1)
Quarter: 2013Q1

REPORT INFORMATION
  Report Type: Spontaneous
  Country: US (occurrence: None)
  Receive Date: 20130305
  Receipt Date: 20130305
  Transmission Date: 20140127
  Serious: Yes (Hospitalization)
  Sender: FDA-Public Use
  Company Number: 163-21880-12090201

PATIENT
  Age: 71 Year
  Sex: Male

DRUGS (1)
  1. REVLIMID [Suspect]
     Dosage: 10 MG, 28 IN 28 D, PO
     Route: 048
     Dates: start: 201110

REACTIONS (2)
  - Hip fracture [None]
  - Fall [None]
